FAERS Safety Report 15284048 (Version 1)
Quarter: 2018Q3

REPORT INFORMATION
  Report Type: Spontaneous
  Country: US (occurrence: US)
  Receive Date: 20180801
  Receipt Date: 20180801
  Transmission Date: 20181010
  Serious: Yes (Other)
  Sender: FDA-Public Use
  Company Number: None

PATIENT
  Sex: Male

DRUGS (6)
  1. METOPROLOL TARTRATE. [Concomitant]
     Active Substance: METOPROLOL TARTRATE
     Dates: start: 20170915
  2. NAPROXEN 500MG [Concomitant]
     Active Substance: NAPROXEN
     Dates: start: 20180614
  3. HUMIRA [Suspect]
     Active Substance: ADALIMUMAB
     Indication: PSORIATIC ARTHROPATHY
     Dosage: ?          OTHER FREQUENCY:EVERY 2 WEEKS;?
     Route: 058
     Dates: start: 20150813, end: 20180731
  4. ALLOPURINOL. [Concomitant]
     Active Substance: ALLOPURINOL
     Dates: start: 20180312
  5. OMEPRAZOLE 20MG [Concomitant]
     Active Substance: OMEPRAZOLE
     Dates: start: 20180614
  6. TRAMADOL. [Concomitant]
     Active Substance: TRAMADOL
     Dates: start: 20180614

REACTIONS (1)
  - Lip neoplasm malignant stage unspecified [None]
